FAERS Safety Report 5546113-2 (Version None)
Quarter: 2007Q4

REPORT INFORMATION
  Report Type: 
  Country: None (occurrence: None)
  Receive Date: 20071211
  Receipt Date: 20071023
  Transmission Date: 20080405
  Serious: Yes (Hospitalization)
  Sender: FDA-Public Use
  Company Number: US-BRISTOL-MYERS SQUIBB COMPANY-13954888

PATIENT

DRUGS (2)
  1. EMSAM [Suspect]
  2. ELECTROCONVULSIVE THERAPY [Suspect]

REACTIONS (1)
  - HOSPITALISATION [None]
